FAERS Safety Report 21446799 (Version 1)
Quarter: 2022Q4

REPORT INFORMATION
  Report Type: Spontaneous
  Country: FR (occurrence: FR)
  Receive Date: 20221012
  Receipt Date: 20221012
  Transmission Date: 20230113
  Serious: Yes (Death, Congenital Anomaly)
  Sender: FDA-Public Use
  Company Number: None

PATIENT

DRUGS (1)
  1. NITROFURANTOIN [Suspect]
     Active Substance: NITROFURANTOIN
     Indication: Cystitis
     Dosage: 2 CAPSULES 3X/D, UNIT DOSE : 6 DF, FREQUENCY TIME : 1 DAYS, DURATION : 7 DAYS
     Dates: start: 20210312, end: 20210319

REACTIONS (2)
  - Heart disease congenital [Fatal]
  - Abortion induced [Fatal]

NARRATIVE: CASE EVENT DATE: 20210427
